FAERS Safety Report 6754800-3 (Version None)
Quarter: 2010Q2

REPORT INFORMATION
  Report Type: 
  Country: None (occurrence: None)
  Receive Date: 20100601
  Receipt Date: 20100521
  Transmission Date: 20101027
  Serious: Yes (Death)
  Sender: FDA-Public Use
  Company Number: 2010TR0008

PATIENT
  Sex: Female

DRUGS (4)
  1. ORFADIN [Suspect]
     Indication: TYROSINAEMIA
     Dosage: 16, 2 MG (2 MG/KG, 1 IN 1 D), ORAL
     Route: 048
     Dates: start: 20090507, end: 20091017
  2. FURACAMIDE [Concomitant]
  3. ALDACTONE [Concomitant]
  4. DE-VIT [Concomitant]

REACTIONS (1)
  - HEPATIC FAILURE [None]
